FAERS Safety Report 23442966 (Version 1)
Quarter: 2024Q1

REPORT INFORMATION
  Report Type: Spontaneous
  Country: US (occurrence: None)
  Receive Date: 20240124
  Receipt Date: 20240124
  Transmission Date: 20240409
  Serious: Yes (Hospitalization)
  Sender: FDA-Public Use
  Company Number: None

PATIENT
  Age: 43 Year
  Sex: Female

DRUGS (1)
  1. FASENRA [Suspect]
     Active Substance: BENRALIZUMAB

REACTIONS (10)
  - Muscle spasms [None]
  - Chest discomfort [None]
  - Dizziness [None]
  - Balance disorder [None]
  - Oxygen saturation decreased [None]
  - Dyspnoea [None]
  - Loss of consciousness [None]
  - Fall [None]
  - Craniofacial fracture [None]
  - Cough [None]

NARRATIVE: CASE EVENT DATE: 20231213
